FAERS Safety Report 4355909-4 (Version None)
Quarter: 2004Q2

REPORT INFORMATION
  Report Type: 
  Country: None (occurrence: None)
  Receive Date: 20040510
  Receipt Date: 20040510
  Transmission Date: 20050107
  Serious: No
  Sender: FDA-Public Use
  Company Number: None

PATIENT
  Sex: Male

DRUGS (15)
  1. ROBAXIN [Suspect]
     Indication: SPINAL DISORDER
     Dosage: 1 GM IV Q 6 H
     Route: 042
     Dates: start: 20040420, end: 20040422
  2. ROBAXIN [Suspect]
     Indication: SURGERY
     Dosage: 1 GM IV Q 6 H
     Route: 042
     Dates: start: 20040420, end: 20040422
  3. DEXAMETHASONE [Concomitant]
  4. TEQUIN [Concomitant]
  5. METOPROLOL [Concomitant]
  6. AMIODARONE HCL [Concomitant]
  7. FLOMAX [Concomitant]
  8. PRANDIN [Concomitant]
  9. PROTNIX [Concomitant]
  10. DOCUSATE SODIUM [Concomitant]
  11. MORPHINE [Concomitant]
  12. TYLENOL W/ CODEINE [Concomitant]
  13. NITROSTAT [Concomitant]
  14. ZOFRAN [Concomitant]
  15. RESTORIL [Concomitant]

REACTIONS (1)
  - BLOOD CREATININE INCREASED [None]
